FAERS Safety Report 19977905 (Version 1)
Quarter: 2021Q4

REPORT INFORMATION
  Report Type: Spontaneous
  Country: US (occurrence: US)
  Receive Date: 20211020
  Receipt Date: 20211020
  Transmission Date: 20220303
  Serious: Yes (unspecified)
  Sender: FDA-Public Use
  Company Number: None

PATIENT
  Age: 65 Year
  Sex: Female
  Weight: 65.12 kg

DRUGS (4)
  1. XELJANZ XR [Suspect]
     Active Substance: TOFACITINIB CITRATE
     Indication: Rheumatoid arthritis
     Route: 048
     Dates: start: 20210810, end: 20210910
  2. Zolpidem 5 mg PO QHS [Concomitant]
     Dates: start: 20200430
  3. ibuprofen 400 mg q6h PRN pain [Concomitant]
     Dates: start: 20200430
  4. Orencia 125 mg QWEEK [Concomitant]
     Dates: start: 20200925, end: 20210702

REACTIONS (3)
  - Abdominal discomfort [None]
  - Throat irritation [None]
  - Therapy cessation [None]

NARRATIVE: CASE EVENT DATE: 20211018
